FAERS Safety Report 25111813 (Version 1)
Quarter: 2025Q1

REPORT INFORMATION
  Report Type: Spontaneous
  Country: US (occurrence: None)
  Receive Date: 20250320
  Receipt Date: 20250320
  Transmission Date: 20250409
  Serious: Yes (Other)
  Sender: FDA-CTU
  Company Number: None

PATIENT
  Age: 76 Year
  Sex: Male
  Weight: 113.4 kg

DRUGS (1)
  1. ZEPBOUND [Suspect]
     Active Substance: TIRZEPATIDE
     Indication: Obesity

REACTIONS (5)
  - Abnormal behaviour [None]
  - Agitation [None]
  - Distractibility [None]
  - Disorientation [None]
  - Depressed level of consciousness [None]

NARRATIVE: CASE EVENT DATE: 20250220
